FAERS Safety Report 24016877 (Version 1)
Quarter: 2024Q2

REPORT INFORMATION
  Report Type: Report from Study
  Country: US (occurrence: US)
  Receive Date: 20240626
  Receipt Date: 20240626
  Transmission Date: 20240716
  Serious: Yes (Death, Other)
  Sender: FDA-Public Use
  Company Number: US-GILEAD-2024-0678599

PATIENT
  Sex: Male

DRUGS (1)
  1. AZTREONAM LYSINE [Suspect]
     Active Substance: AZTREONAM LYSINE
     Indication: Cystic fibrosis
     Dosage: 75 MG, INHALE 1 ML (75 MG) VIA NEBULIZER THREE TIMES DAILY FOR 28 DAYS ON FOLLOWED BY 28 DAYS OFF
     Route: 055
     Dates: start: 20240214

REACTIONS (1)
  - Death [Fatal]
